FAERS Safety Report 8603558-1 (Version None)
Quarter: 2012Q3

REPORT INFORMATION
  Report Type: 
  Country: None (occurrence: None)
  Receive Date: 20120817
  Receipt Date: 20120816
  Transmission Date: 20120928
  Serious: Yes (Life-Threatening, Other)
  Sender: FDA-Public Use
  Company Number: PHHY2012GB071026

PATIENT
  Age: 64 Year
  Sex: Male
  Weight: 86 kg

DRUGS (2)
  1. ALLOPURINOL [Concomitant]
     Indication: GOUT
     Dosage: 300 MG, UNK
     Route: 048
     Dates: start: 19940101
  2. LOSARTAN POTASSIUM [Suspect]
     Indication: HYPERTENSION
     Dosage: 50 MG
     Route: 048
     Dates: start: 20110912, end: 20120601

REACTIONS (1)
  - CARDIAC ARREST [None]
